FAERS Safety Report 14354697 (Version 2)
Quarter: 2018Q1

REPORT INFORMATION
  Report Type: Spontaneous
  Country: GB (occurrence: GB)
  Receive Date: 20180105
  Receipt Date: 20180328
  Transmission Date: 20180509
  Serious: Yes (Other)
  Sender: FDA-Public Use
  Company Number: GB-LUPIN PHARMACEUTICALS INC.-2017-07696

PATIENT
  Age: 40 Year
  Sex: Male

DRUGS (5)
  1. MOXIFLOXACIN. [Suspect]
     Active Substance: MOXIFLOXACIN
     Indication: URETHRITIS MYCOPLASMAL
     Dosage: 400 MG, QD
     Route: 065
  2. AZITHROMYCIN ANHYDROUS. [Suspect]
     Active Substance: AZITHROMYCIN ANHYDROUS
     Dosage: UNK
     Route: 065
  3. DOXYCYCLINE. [Suspect]
     Active Substance: DOXYCYCLINE
     Indication: URETHRITIS MYCOPLASMAL
     Dosage: 100 MG, BID
     Route: 065
  4. AZITHROMYCIN ANHYDROUS. [Suspect]
     Active Substance: AZITHROMYCIN ANHYDROUS
     Indication: URETHRITIS MYCOPLASMAL
     Dosage: 1 G, UNK
     Route: 065
  5. PRISTINAMYCIN [Concomitant]
     Active Substance: PRISTINAMYCIN
     Indication: URETHRITIS MYCOPLASMAL
     Dosage: 1 G, QID
     Route: 065

REACTIONS (4)
  - Condition aggravated [Recovered/Resolved]
  - Urethral discharge [Recovered/Resolved]
  - Dysuria [Recovered/Resolved]
  - Drug resistance [Unknown]
